FAERS Safety Report 16072630 (Version 1)
Quarter: 2019Q1

REPORT INFORMATION
  Report Type: Spontaneous
  Country: US (occurrence: US)
  Receive Date: 20190314
  Receipt Date: 20190314
  Transmission Date: 20190418
  Serious: No
  Sender: FDA-Public Use
  Company Number: US-MYLANLABS-2019M1020056

PATIENT
  Sex: Female
  Weight: 47 kg

DRUGS (3)
  1. LIDOCAINE PATCH [Suspect]
     Active Substance: LIDOCAINE
     Indication: INTERVERTEBRAL DISC DEGENERATION
     Dosage: UNK
     Route: 003
     Dates: end: 20190124
  2. FENTANIL [Concomitant]
     Active Substance: FENTANYL
     Indication: PAIN
     Dosage: INTRATHECAL FENTANYL PUMP
     Route: 037
  3. LEVORPHANOL [Concomitant]
     Active Substance: LEVORPHANOL
     Indication: BREAKTHROUGH PAIN
     Dosage: 2MG AS NEEDED UP TO 3 A DAY

REACTIONS (4)
  - Product adhesion issue [Unknown]
  - Off label use [Unknown]
  - Drug ineffective for unapproved indication [Unknown]
  - Product quality issue [Unknown]
